FAERS Safety Report 4553827-X (Version None)
Quarter: 2005Q1

REPORT INFORMATION
  Report Type: 
  Country: None (occurrence: None)
  Receive Date: 20050114
  Receipt Date: 20050114
  Transmission Date: 20050727
  Serious: Yes (Life-Threatening)
  Sender: FDA-Public Use
  Company Number: None

PATIENT
  Sex: Female

DRUGS (2)
  1. TEQUIN [Suspect]
     Indication: SINUSITIS
     Dosage: 400 MG PO DAILY
     Route: 048
     Dates: start: 20041228, end: 20041230
  2. MEDROL [Concomitant]

REACTIONS (4)
  - DYSPNOEA [None]
  - ERYTHEMA [None]
  - OEDEMA MOUTH [None]
  - THROAT IRRITATION [None]
